FAERS Safety Report 9133777 (Version 1)
Quarter: 2013Q1

REPORT INFORMATION
  Report Type: Spontaneous
  Country: RO (occurrence: RO)
  Receive Date: 20130303
  Receipt Date: 20130303
  Transmission Date: 20140127
  Serious: Yes (Other)
  Sender: FDA-Public Use
  Company Number: RO-TEVA-389010ISR

PATIENT
  Sex: 0

DRUGS (1)
  1. CARBAMAZEPINE [Suspect]

REACTIONS (3)
  - Rhabdomyolysis [Unknown]
  - Toxicity to various agents [Unknown]
  - Nephropathy toxic [Unknown]
